FAERS Safety Report 4383585-3 (Version None)
Quarter: 2004Q2

REPORT INFORMATION
  Report Type: 
  Country: None (occurrence: None)
  Receive Date: 20040618
  Receipt Date: 20040528
  Transmission Date: 20050107
  Serious: Yes (Other)
  Sender: FDA-Public Use
  Company Number: USA040668842

PATIENT
  Age: 53 Year
  Sex: Female
  Weight: 50 kg

DRUGS (3)
  1. EVISTA [Suspect]
     Dosage: 60 MG DAY
     Dates: start: 20040501
  2. CALCIUM [Concomitant]
  3. IRON [Concomitant]

REACTIONS (1)
  - CARCINOEMBRYONIC ANTIGEN INCREASED [None]
